FAERS Safety Report 9199170 (Version 1)
Quarter: 2013Q1

REPORT INFORMATION
  Report Type: Spontaneous
  Country: US (occurrence: None)
  Receive Date: 20130325
  Receipt Date: 20130325
  Transmission Date: 20140127
  Serious: Yes (Hospitalization)
  Sender: FDA-Public Use
  Company Number: 2013US-004604

PATIENT
  Age: 75 Year
  Sex: Female
  Weight: 69 kg

DRUGS (13)
  1. OMONTYS (PEGINESATIDE) SOLUTION FOR INJECTION [Suspect]
     Indication: NEPHROGENIC ANAEMIA
     Route: 042
     Dates: start: 20130208, end: 20130208
  2. NORVASC (AMLODIPINE BESILATE) [Concomitant]
  3. ATENOLOL (ATENOLOL) [Concomitant]
  4. LIPITOR (ATORVASTATIN CALCIUM) [Concomitant]
  5. FOLBEE PLUS (ASCORBIC ACID, VITAMIN B COMPLEX) [Concomitant]
  6. TUMS (CALCIUM CARBONATE, MAGNESIUM CARBONATE, MAGNESIUM TRISILICATE) [Concomitant]
  7. CLONIDINE (CLONIDINE) [Concomitant]
  8. LASIX (FUROSEMIDE) [Concomitant]
  9. HEPARIN (HEPARIN) [Concomitant]
  10. LISINOPRIL (LISINOPRIL) [Concomitant]
  11. PROTONIX (PANTOPRAZOLE SODIUM SESQUIHYDRATE) [Concomitant]
  12. ZEMPLAR (PARICALCITOL) [Concomitant]
  13. EPOGEN (EPOETIN ALFA) [Concomitant]

REACTIONS (1)
  - Deep vein thrombosis [None]
